FAERS Safety Report 6124065-4 (Version None)
Quarter: 2009Q1

REPORT INFORMATION
  Report Type: 
  Country: None (occurrence: None)
  Receive Date: 20090319
  Receipt Date: 20090310
  Transmission Date: 20090719
  Serious: Yes (Other)
  Sender: FDA-Public Use
  Company Number: PHEH2008US00975

PATIENT
  Sex: Female

DRUGS (2)
  1. AREDIA [Suspect]
  2. ZOMETA [Suspect]
     Indication: BREAST CANCER

REACTIONS (12)
  - ANXIETY [None]
  - CHRONIC SINUSITIS [None]
  - DECREASED INTEREST [None]
  - DENTAL CARIES [None]
  - GENERAL PHYSICAL HEALTH DETERIORATION [None]
  - MASTICATION DISORDER [None]
  - OSTEONECROSIS [None]
  - OSTEORADIONECROSIS [None]
  - PAIN [None]
  - RHINORRHOEA [None]
  - TOOTH LOSS [None]
  - TRISMUS [None]
